FAERS Safety Report 8823891 (Version 2)
Quarter: 2012Q4

REPORT INFORMATION
  Report Type: 
  Country: DE (occurrence: DE)
  Receive Date: 20121003
  Receipt Date: 20121015
  Transmission Date: 20130627
  Serious: Yes (Other)
  Sender: FDA-Public Use
  Company Number: DE-B.I. PHARMACEUTICALS,INC./RIDGEFIELD-2012-DE-02295DE

PATIENT
  Age: 68 Year
  Sex: Male
  Weight: 86 kg

DRUGS (4)
  1. PRADAXA [Suspect]
     Indication: ATRIAL FIBRILLATION
     Dosage: 220 mg
     Route: 048
     Dates: start: 20120314, end: 20120515
  2. BELOC ZOK [Concomitant]
     Indication: CARDIAC FAILURE
     Dosage: 95 mg
     Route: 048
  3. BIPRETERAX [Concomitant]
     Indication: CARDIAC FAILURE
     Dosage: 5/1.25
     Route: 048
  4. SIMVASTATIN [Concomitant]
     Indication: HYPERCHOLESTEROLAEMIA
     Dosage: 20 mg
     Route: 048

REACTIONS (3)
  - Liver function test abnormal [Unknown]
  - Gamma-glutamyltransferase increased [Recovered/Resolved]
  - Spontaneous haematoma [Recovered/Resolved]
